FAERS Safety Report 8532634-7 (Version None)
Quarter: 2012Q3

REPORT INFORMATION
  Report Type: 
  Country: None (occurrence: None)
  Receive Date: 20120724
  Receipt Date: 20120713
  Transmission Date: 20120928
  Serious: Yes (Other)
  Sender: FDA-Public Use
  Company Number: US-BRISTOL-MYERS SQUIBB COMPANY-16766115

PATIENT
  Age: 55 Year
  Sex: Male
  Weight: 153 kg

DRUGS (1)
  1. COUMADIN [Suspect]
     Indication: DEEP VEIN THROMBOSIS
     Dosage: ALSO STARTED FROM AUG2011 1MG,EXP:19JUN2013 4MG,EXP:14MAY2013 7.5MG,EXP:08AUG2012 6.5MG/WK
     Dates: start: 20060101

REACTIONS (2)
  - RENAL FAILURE CHRONIC [None]
  - INTERNATIONAL NORMALISED RATIO FLUCTUATION [None]
